FAERS Safety Report 11788672 (Version 1)
Quarter: 2015Q4

REPORT INFORMATION
  Report Type: Spontaneous
  Country: US (occurrence: US)
  Receive Date: 20151201
  Receipt Date: 20151201
  Transmission Date: 20160305
  Serious: Yes (Death, Other)
  Sender: FDA-Public Use
  Company Number: US-CELGENE-USA-2015116102

PATIENT

DRUGS (8)
  1. SONIDEGIB [Suspect]
     Active Substance: SONIDEGIB
     Indication: CHRONIC MYELOMONOCYTIC LEUKAEMIA
     Route: 048
  2. SONIDEGIB [Suspect]
     Active Substance: SONIDEGIB
     Indication: MYELODYSPLASTIC SYNDROME
  3. VIDAZA [Suspect]
     Active Substance: AZACITIDINE
     Indication: ACUTE MYELOID LEUKAEMIA
     Dosage: 75 MILLIGRAM/SQ. METER
     Route: 041
  4. VIDAZA [Suspect]
     Active Substance: AZACITIDINE
     Indication: MYELODYSPLASTIC SYNDROME
  5. SONIDEGIB [Suspect]
     Active Substance: SONIDEGIB
     Indication: ACUTE MYELOID LEUKAEMIA
     Route: 048
  6. VIDAZA [Suspect]
     Active Substance: AZACITIDINE
     Indication: CHRONIC MYELOMONOCYTIC LEUKAEMIA
  7. SONIDEGIB [Suspect]
     Active Substance: SONIDEGIB
     Indication: MYELOPROLIFERATIVE DISORDER
  8. VIDAZA [Suspect]
     Active Substance: AZACITIDINE
     Indication: MYELOPROLIFERATIVE DISORDER

REACTIONS (6)
  - Death [Fatal]
  - Fatigue [Unknown]
  - Disease progression [Unknown]
  - Hyponatraemia [Unknown]
  - Blood creatine phosphokinase increased [Unknown]
  - Neutropenia [Unknown]
